FAERS Safety Report 6444630-4 (Version None)
Quarter: 2009Q4

REPORT INFORMATION
  Report Type: 
  Country: None (occurrence: None)
  Receive Date: 20091118
  Receipt Date: 20091111
  Transmission Date: 20100525
  Serious: No
  Sender: FDA-Public Use
  Company Number: US-B.I. PHARMACEUTICALS,INC./RIDGEFIELD-2009-BP-11900BP

PATIENT
  Sex: Female

DRUGS (15)
  1. SPIRIVA [Suspect]
     Indication: CHRONIC OBSTRUCTIVE PULMONARY DISEASE
     Dosage: 18 MCG
     Route: 055
     Dates: start: 20090924, end: 20091016
  2. PLAVIX [Concomitant]
     Indication: CORONARY ARTERY DISEASE
     Dates: start: 20010101
  3. CRESTOR [Concomitant]
     Indication: BLOOD CHOLESTEROL INCREASED
     Dates: start: 20010101
  4. METOPROLOL [Concomitant]
     Indication: HYPERTENSION
     Dates: start: 20010101
  5. ZETIA [Concomitant]
     Indication: BLOOD CHOLESTEROL INCREASED
     Dates: start: 20010101
  6. CHLOROTHIAZIDE [Concomitant]
     Indication: HYPERTENSION
     Dates: start: 20010101
  7. NIACIN [Concomitant]
     Indication: SUPPLEMENTATION THERAPY
  8. FLAXSEED OIL [Concomitant]
     Indication: SUPPLEMENTATION THERAPY
  9. FISH OIL [Concomitant]
     Indication: SUPPLEMENTATION THERAPY
  10. MAGNESIUM [Concomitant]
     Indication: MINERAL SUPPLEMENTATION
  11. ASPIRIN [Concomitant]
     Indication: PROPHYLAXIS
     Dosage: 81 MG
     Route: 048
  12. DOCUSATE [Concomitant]
     Indication: CONSTIPATION
  13. LEXAPRO [Concomitant]
     Indication: ANXIETY
     Dates: start: 20010101
  14. CALCIUM [Concomitant]
     Indication: MINERAL SUPPLEMENTATION
  15. PRIOLSEC [Concomitant]
     Indication: GASTROOESOPHAGEAL REFLUX DISEASE

REACTIONS (4)
  - COUGH [None]
  - DYSPHONIA [None]
  - HAEMOPTYSIS [None]
  - PRODUCTIVE COUGH [None]
